FAERS Safety Report 16001171 (Version 1)
Quarter: 2019Q1

REPORT INFORMATION
  Report Type: Spontaneous
  Country: US (occurrence: US)
  Receive Date: 20190224
  Receipt Date: 20190224
  Transmission Date: 20190418
  Serious: Yes (Other)
  Sender: FDA-Public Use
  Company Number: None

PATIENT
  Age: 61 Year
  Sex: Female
  Weight: 78.75 kg

DRUGS (1)
  1. XOPENEX HFA [Suspect]
     Active Substance: LEVALBUTEROL TARTRATE
     Indication: ASTHMA
     Dosage: ?          OTHER STRENGTH:200 METERED DOSE;QUANTITY:2 PUFF(S);?
     Route: 055
     Dates: start: 20190213, end: 20190222

REACTIONS (1)
  - Pruritus [None]

NARRATIVE: CASE EVENT DATE: 20190221
